FAERS Safety Report 9984910 (Version 1)
Quarter: 2014Q1

REPORT INFORMATION
  Report Type: Report from Study
  Country: US (occurrence: US)
  Receive Date: 20140307
  Receipt Date: 20140307
  Transmission Date: 20141002
  Serious: No
  Sender: FDA-Public Use
  Company Number: US-ABBVIE-13P-163-1185160-00

PATIENT
  Age: 15 Year
  Sex: Female

DRUGS (3)
  1. HUMIRA [Suspect]
     Indication: JUVENILE IDIOPATHIC ARTHRITIS
     Dates: start: 20131223
  2. DICLOFENAC POTASSIUM [Concomitant]
     Indication: ENDODONTIC PROCEDURE
  3. CEPHALEXIN [Concomitant]
     Indication: ENDODONTIC PROCEDURE
     Dates: end: 20140102

REACTIONS (4)
  - Wrong technique in drug usage process [Not Recovered/Not Resolved]
  - Incorrect dose administered [Not Recovered/Not Resolved]
  - Injection site bruising [Not Recovered/Not Resolved]
  - Rash [Not Recovered/Not Resolved]
